FAERS Safety Report 16947044 (Version 3)
Quarter: 2019Q4

REPORT INFORMATION
  Report Type: Spontaneous
  Country: US (occurrence: US)
  Receive Date: 20191022
  Receipt Date: 20191202
  Transmission Date: 20200122
  Serious: Yes (Other)
  Sender: FDA-Public Use
  Company Number: US-PFIZER INC-2019453078

PATIENT
  Age: 67 Year
  Sex: Female

DRUGS (1)
  1. IBRANCE [Suspect]
     Active Substance: PALBOCICLIB
     Indication: BREAST CANCER METASTATIC
     Dosage: 125 MG, CYCLIC(TAKE 1 CAPSULE BY MOUTH DAILY FOR 21 DAYS ON THEN OFF FOR 7 DAYS EVERY 28 DAY CYCLE)
     Route: 048
     Dates: start: 20191001

REACTIONS (2)
  - Diarrhoea [Unknown]
  - Clostridium difficile infection [Unknown]
